FAERS Safety Report 13796138 (Version 3)
Quarter: 2017Q4

REPORT INFORMATION
  Report Type: Spontaneous
  Country: US (occurrence: US)
  Receive Date: 20170726
  Receipt Date: 20171001
  Transmission Date: 20180320
  Serious: Yes (Other)
  Sender: FDA-Public Use
  Company Number: US-BAYER-2017-138536

PATIENT
  Age: 9 Year
  Sex: Male
  Weight: 38 kg

DRUGS (1)
  1. COPPERTONE SPORT CONTINUOUS SPF 100 PLUS [Suspect]
     Active Substance: AVOBENZONE\HOMOSALATE\OCTINOXATE\OCTISALATE\OCTOCRYLENE\OXYBENZONE
     Indication: THERAPEUTIC SKIN CARE TOPICAL
     Dosage: APPLIED 4-5 TIMES IN 5 HOUR PERIOD DOSE
     Route: 061
     Dates: start: 20170709, end: 20170709

REACTIONS (6)
  - Pain [Recovered/Resolved]
  - Application site scab [Not Recovered/Not Resolved]
  - Skin discolouration [Not Recovered/Not Resolved]
  - Blister rupture [Recovered/Resolved]
  - Sunburn [Not Recovered/Not Resolved]
  - Application site exfoliation [Not Recovered/Not Resolved]

NARRATIVE: CASE EVENT DATE: 20170709
